FAERS Safety Report 16708945 (Version 1)
Quarter: 2019Q3

REPORT INFORMATION
  Report Type: Spontaneous
  Country: US (occurrence: US)
  Receive Date: 20190816
  Receipt Date: 20190816
  Transmission Date: 20191004
  Serious: Yes (Hospitalization)
  Sender: FDA-Public Use
  Company Number: US-STRIDES ARCOLAB LIMITED-2019SP007683

PATIENT
  Age: 67 Year
  Sex: Female

DRUGS (3)
  1. VANCOMYCIN [Suspect]
     Active Substance: VANCOMYCIN
     Indication: PNEUMONIA
  2. VANCOMYCIN [Suspect]
     Active Substance: VANCOMYCIN
     Indication: STAPHYLOCOCCAL INFECTION
     Dosage: UNK, SIX MONTHS PRIOR TO CURRENT PRESENTATION, UNK
     Route: 042
  3. VANCOMYCIN [Suspect]
     Active Substance: VANCOMYCIN
     Indication: BACTERAEMIA
     Dosage: UNK, DURING CURRENT PRESENTATION, UNK
     Route: 042

REACTIONS (12)
  - Tachycardia [Unknown]
  - Bacteraemia [Unknown]
  - Nausea [Unknown]
  - Pyrexia [Unknown]
  - Staphylococcal infection [Unknown]
  - Cholecystitis [Unknown]
  - Malaise [Unknown]
  - Chills [Unknown]
  - Vomiting [Unknown]
  - Disease recurrence [Unknown]
  - Decreased appetite [Unknown]
  - Abdominal pain [Unknown]
